FAERS Safety Report 16633176 (Version 2)
Quarter: 2019Q4

REPORT INFORMATION
  Report Type: Spontaneous
  Country: US (occurrence: US)
  Receive Date: 20190725
  Receipt Date: 20191112
  Transmission Date: 20200122
  Serious: No
  Sender: FDA-Public Use
  Company Number: US-LEXICON PHARMACEUTICALS, INC-19-1606-00731

PATIENT
  Sex: Female

DRUGS (2)
  1. LANREOTIDE INJ [Concomitant]
  2. TELOTRISTAT ETHYL [Suspect]
     Active Substance: TELOTRISTAT ETHYL
     Indication: NEUROENDOCRINE TUMOUR
     Route: 048
     Dates: start: 201703

REACTIONS (3)
  - Malaise [Not Recovered/Not Resolved]
  - Infection [Unknown]
  - Product dose omission [Not Recovered/Not Resolved]
